FAERS Safety Report 9886909 (Version 2)
Quarter: 2016Q3

REPORT INFORMATION
  Report Type: Report from Study
  Country: CA (occurrence: CA)
  Receive Date: 20140210
  Receipt Date: 20160914
  Transmission Date: 20161109
  Serious: Yes (Other)
  Sender: FDA-Public Use
  Company Number: CA-ROCHE-1344265

PATIENT
  Age: 76 Year
  Sex: Female
  Weight: 82.1 kg

DRUGS (17)
  1. METHOTREXATE. [Concomitant]
     Active Substance: METHOTREXATE
  2. ACTONEL [Concomitant]
     Active Substance: RISEDRONATE SODIUM
  3. GABAPENTIN. [Concomitant]
     Active Substance: GABAPENTIN
  4. ACTEMRA [Suspect]
     Active Substance: TOCILIZUMAB
     Route: 042
     Dates: start: 20140218
  5. MOBICOX [Concomitant]
     Active Substance: MELOXICAM
  6. FOLIC ACID. [Concomitant]
     Active Substance: FOLIC ACID
  7. VITAMIN C [Concomitant]
     Active Substance: ASCORBIC ACID
  8. PREDNISONE. [Concomitant]
     Active Substance: PREDNISONE
  9. METOPROLOL. [Concomitant]
     Active Substance: METOPROLOL
  10. PLAQUENIL [Concomitant]
     Active Substance: HYDROXYCHLOROQUINE SULFATE
  11. MORPHINE [Concomitant]
     Active Substance: MORPHINE
  12. ACTEMRA [Suspect]
     Active Substance: TOCILIZUMAB
     Indication: RHEUMATOID ARTHRITIS
     Route: 042
     Dates: start: 20140122
  13. ENALAPRIL [Concomitant]
     Active Substance: ENALAPRIL
     Indication: BLOOD PRESSURE MEASUREMENT
  14. LIPITOR [Concomitant]
     Active Substance: ATORVASTATIN CALCIUM
  15. HYDROCHLOROTHIAZIDE. [Concomitant]
     Active Substance: HYDROCHLOROTHIAZIDE
  16. ACTEMRA [Suspect]
     Active Substance: TOCILIZUMAB
     Route: 042
     Dates: start: 20160907
  17. AMLODIPINE [Concomitant]
     Active Substance: AMLODIPINE BESYLATE

REACTIONS (2)
  - Thrombosis [Unknown]
  - Infection [Unknown]

NARRATIVE: CASE EVENT DATE: 20140129
